FAERS Safety Report 7367447-5 (Version None)
Quarter: 2011Q1

REPORT INFORMATION
  Report Type: 
  Country: None (occurrence: None)
  Receive Date: 20110309
  Receipt Date: 20110304
  Transmission Date: 20110831
  Serious: Yes (Death)
  Sender: FDA-Public Use
  Company Number: 2011SP002380

PATIENT
  Age: 59 Year
  Sex: Male

DRUGS (12)
  1. ZOLPIDEM TARTRATE [Concomitant]
  2. REFLEX (MIRTAZAPINE /01293201/) [Suspect]
     Indication: DEPRESSION
     Dosage: 30 MG, QD, PO
     Route: 048
     Dates: start: 20100427
  3. FLUNITRAZEPAM [Concomitant]
  4. HYDROCHLORIDE [Concomitant]
  5. SEDAPRAN [Concomitant]
  6. CILNIDIPINE [Concomitant]
  7. CANDESARTAN CILEXETIL [Concomitant]
  8. SULPRIDE (LEVOSULPRIDE) [Suspect]
     Indication: DEPRESSION
     Dosage: 150 MG, QD, PO
     Route: 048
     Dates: start: 20070106
  9. RILMAZAFONE [Concomitant]
  10. TOLEDOMIN (MILNACIPRAN HYDROCHLORIDE) [Suspect]
     Indication: DEPRESSION
     Dosage: 150 MG, QD, PO
     Route: 048
     Dates: start: 20081128
  11. NIMETAZEPAM [Concomitant]
  12. NEUOMIL [Concomitant]

REACTIONS (1)
  - COMPLETED SUICIDE [None]
